FAERS Safety Report 24342373 (Version 2)
Quarter: 2024Q3

REPORT INFORMATION
  Report Type: Spontaneous
  Country: TH (occurrence: TH)
  Receive Date: 20240920
  Receipt Date: 20240924
  Transmission Date: 20241016
  Serious: Yes (Death)
  Sender: NOVARTIS
  Company Number: TH-002147023-NVSC2024TH187203

PATIENT
  Age: 74 Year
  Sex: Female

DRUGS (2)
  1. RIBOCICLIB [Suspect]
     Active Substance: RIBOCICLIB
     Indication: Hormone receptor positive HER2 negative breast cancer
     Dosage: UNK ((200) 3X1 3 WEEKS ON 1 WEEK OF)
     Route: 065
     Dates: start: 20220727
  2. LETROZOLE [Suspect]
     Active Substance: LETROZOLE
     Indication: Product used for unknown indication
     Dosage: UNK, QD (1X1)
     Route: 065
     Dates: start: 20220825

REACTIONS (5)
  - Death [Fatal]
  - Fatigue [Unknown]
  - Dizziness [Unknown]
  - Insomnia [Unknown]
  - Therapy partial responder [Unknown]
